FAERS Safety Report 6795480-0 (Version None)
Quarter: 2010Q2

REPORT INFORMATION
  Report Type: 
  Country: None (occurrence: None)
  Receive Date: 20100625
  Receipt Date: 20100611
  Transmission Date: 20101027
  Serious: Yes (Hospitalization)
  Sender: FDA-Public Use
  Company Number: PHHY2010US33993

PATIENT
  Sex: Female

DRUGS (11)
  1. RECLAST [Suspect]
     Indication: OSTEOPOROSIS
     Dosage: 5 MG, ONCE YEARLY
     Route: 042
     Dates: start: 20100430
  2. NAPROXEN [Concomitant]
  3. TIMOLOL MALEATE [Concomitant]
  4. TRAVERTINE [Concomitant]
  5. CALCIUM CARBONATE [Concomitant]
  6. VITAMINS WITH MINERALS [Concomitant]
  7. ANTIHISTAMINES [Concomitant]
  8. DECONGESTANT [Concomitant]
  9. TRAVATAN [Concomitant]
     Indication: GLAUCOMA
  10. MAXALT-MLT [Concomitant]
     Dosage: 10 MG
     Route: 048
  11. OSCAL 500-D [Concomitant]
     Dosage: 500 MG, BID

REACTIONS (12)
  - ANAEMIA [None]
  - BLOOD CREATININE INCREASED [None]
  - DECREASED APPETITE [None]
  - DEHYDRATION [None]
  - DIARRHOEA [None]
  - FATIGUE [None]
  - GASTRIC ULCER [None]
  - GASTROINTESTINAL HAEMORRHAGE [None]
  - HYPERCALCAEMIA [None]
  - HYPOKALAEMIA [None]
  - NASOPHARYNGITIS [None]
  - RENAL FAILURE ACUTE [None]
